FAERS Safety Report 5570679-X (Version None)
Quarter: 2007Q4

REPORT INFORMATION
  Report Type: 
  Country: None (occurrence: None)
  Receive Date: 20071221
  Receipt Date: 20071210
  Transmission Date: 20080405
  Serious: Yes (Other)
  Sender: FDA-Public Use
  Company Number: JP-JNJFOC-20070706360

PATIENT
  Sex: Female
  Weight: 51 kg

DRUGS (7)
  1. ITRIZOLE [Suspect]
     Indication: PROPHYLAXIS
     Route: 048
  2. ITRIZOLE [Suspect]
     Route: 048
  3. ONCOVIN [Interacting]
     Route: 042
  4. ONCOVIN [Interacting]
     Indication: LYMPHOMA
     Route: 042
  5. ADRIAMYCIN PFS [Concomitant]
     Indication: LYMPHOMA
     Route: 042
  6. CYCLOPHOSPHAMIDE [Concomitant]
     Indication: LYMPHOMA
     Route: 042
  7. PREDNISOLONE [Concomitant]
     Indication: LYMPHOMA
     Route: 048

REACTIONS (3)
  - DRUG INTERACTION [None]
  - HYPONATRAEMIA [None]
  - MYALGIA [None]
